FAERS Safety Report 6817809-7 (Version None)
Quarter: 2010Q3

REPORT INFORMATION
  Report Type: 
  Country: None (occurrence: None)
  Receive Date: 20100706
  Receipt Date: 20100628
  Transmission Date: 20110219
  Serious: Yes (Hospitalization)
  Sender: FDA-Public Use
  Company Number: FR-PFIZER INC-2010080006

PATIENT
  Age: 69 Year
  Sex: Male
  Weight: 102.95 kg

DRUGS (14)
  1. TAHOR [Suspect]
     Dosage: 20 MG, 1X/DAY
     Route: 048
     Dates: start: 20090901, end: 20100501
  2. LYRICA [Suspect]
     Dosage: UNK
     Route: 048
     Dates: start: 20090901, end: 20100501
  3. ISOPTIN [Suspect]
     Dosage: 240 MG, 1X/DAY
     Route: 048
     Dates: start: 20090901
  4. VASTAREL [Suspect]
     Dosage: 35 MG, 2X/DAY
     Route: 048
     Dates: start: 20090901, end: 20100501
  5. CITALOPRAM HYDROBROMIDE [Suspect]
     Dosage: 20 MG, 1X/DAY
     Route: 048
     Dates: start: 20090901
  6. ASPEGIC 1000 [Concomitant]
     Dosage: UNK
     Dates: end: 20100314
  7. DIFFU K [Concomitant]
  8. LASILIX 40 [Concomitant]
  9. CORTANCYL 20 [Concomitant]
  10. INEXIUM 20 [Concomitant]
  11. DIAMICRON [Concomitant]
  12. AZOPT [Concomitant]
  13. MYDRIATICUM ^ROCHE^ [Concomitant]
     Dosage: UNK
  14. ATROVENT [Concomitant]

REACTIONS (1)
  - ACQUIRED HAEMOPHILIA [None]
